FAERS Safety Report 5449385-8 (Version None)
Quarter: 2007Q3

REPORT INFORMATION
  Report Type: 
  Country: None (occurrence: None)
  Receive Date: 20070907
  Receipt Date: 20070828
  Transmission Date: 20080115
  Serious: Yes (Other)
  Sender: FDA-Public Use
  Company Number: 17305

PATIENT
  Age: 70 Year
  Sex: Male

DRUGS (1)
  1. ACYCLOVIR [Suspect]
     Indication: HERPES ZOSTER
     Dosage: 500 MG QD IV
     Route: 042

REACTIONS (12)
  - AGITATION [None]
  - BLOOD CREATININE INCREASED [None]
  - CONFUSIONAL STATE [None]
  - DELIRIUM [None]
  - DISORIENTATION [None]
  - HALLUCINATION, AUDITORY [None]
  - HALLUCINATION, VISUAL [None]
  - INSOMNIA [None]
  - MEMORY IMPAIRMENT [None]
  - NEUROTOXICITY [None]
  - PSYCHOTIC DISORDER [None]
  - REFUSAL OF TREATMENT BY RELATIVE [None]
